FAERS Safety Report 8048417-0 (Version None)
Quarter: 2012Q1

REPORT INFORMATION
  Report Type: 
  Country: None (occurrence: None)
  Receive Date: 20120117
  Receipt Date: 20120111
  Transmission Date: 20120608
  Serious: No
  Sender: FDA-Public Use
  Company Number: US-PFIZER INC-2012008329

PATIENT
  Sex: Male
  Weight: 92.9 kg

DRUGS (10)
  1. FUROSEMIDE [Concomitant]
     Dosage: 40 MG, UNK
  2. TIMOLOL MALEATE [Concomitant]
     Dosage: 0.05% OP
  3. VYTORIN [Concomitant]
     Dosage: 10-10MG
  4. ZANTAC [Concomitant]
     Dosage: 150 MG, UNK
  5. SPIRIVA [Concomitant]
  6. SUTENT [Suspect]
     Dosage: 50 MG, 1X/DAY FOR 28 DAYS
     Route: 048
  7. ASPIRIN ADUL [Concomitant]
     Dosage: 81 MG, UNK
  8. XALATAN [Concomitant]
     Dosage: 0.005 %, UNK
  9. PLAVIX [Concomitant]
     Dosage: 75 MG, UNK
  10. COREG [Concomitant]
     Dosage: 25 MG, UNK

REACTIONS (3)
  - DYSPEPSIA [None]
  - AGEUSIA [None]
  - THROAT IRRITATION [None]
